FAERS Safety Report 18526857 (Version 1)
Quarter: 2020Q4

REPORT INFORMATION
  Report Type: Other
  Country: US (occurrence: US)
  Receive Date: 20201120
  Receipt Date: 20201120
  Transmission Date: 20210114
  Serious: Yes (Hospitalization, Other)
  Sender: FDA-Public Use
  Company Number: US-ROCHE-2663089

PATIENT
  Age: 61 Year
  Sex: Female

DRUGS (7)
  1. KADCYLA [Suspect]
     Active Substance: ADO-TRASTUZUMAB EMTANSINE
     Indication: BREAST CANCER FEMALE
     Dosage: DATE OF SERVICE: 05/AUG/2020
     Route: 042
  2. IMODIUM [Concomitant]
     Active Substance: LOPERAMIDE HYDROCHLORIDE
  3. XELODA [Suspect]
     Active Substance: CAPECITABINE
     Indication: BREAST CANCER FEMALE
     Dosage: TAKE 3 TABLET(S) BY MOUTH EVERY 12 HOURS 2 WEEK(S) ON, 1 WEEK(S) OFF. TAKE AFTER MEALS WITHIN 30 MIN
     Route: 048
  4. HERCEPTIN [Suspect]
     Active Substance: TRASTUZUMAB
     Dosage: 28/SEP/2020: DATE OF SERVICE
     Route: 042
  5. PERJETA [Suspect]
     Active Substance: PERTUZUMAB
     Indication: PRODUCT USED FOR UNKNOWN INDICATION
     Route: 065
  6. XELODA [Suspect]
     Active Substance: CAPECITABINE
     Dosage: TAKE 2 CAPSULE WITH FOOD
     Route: 048
  7. HERCEPTIN [Suspect]
     Active Substance: TRASTUZUMAB
     Indication: BREAST CANCER FEMALE
     Dosage: 28/SEP/2020: DATE OF SERVICE
     Route: 042

REACTIONS (13)
  - Memory impairment [Unknown]
  - Pain in extremity [Unknown]
  - Intentional product use issue [Unknown]
  - Off label use [Unknown]
  - Ageusia [Unknown]
  - Fatigue [Unknown]
  - Anxiety [Unknown]
  - Decreased appetite [Unknown]
  - Pain [Unknown]
  - Anal haemorrhage [Unknown]
  - Nausea [Unknown]
  - Skin discolouration [Unknown]
  - Weight decreased [Unknown]

NARRATIVE: CASE EVENT DATE: 20201030
